FAERS Safety Report 11210768 (Version 1)
Quarter: 2015Q2

REPORT INFORMATION
  Report Type: Spontaneous
  Country: US (occurrence: US)
  Receive Date: 20150622
  Receipt Date: 20150622
  Transmission Date: 20150821
  Serious: No
  Sender: FDA-Public Use
  Company Number: US-TAKEDA-2014TUS010232

PATIENT
  Sex: Male

DRUGS (1)
  1. OSENI [Suspect]
     Active Substance: ALOGLIPTIN BENZOATE\PIOGLITAZONE HYDROCHLORIDE
     Indication: PRODUCT USED FOR UNKNOWN INDICATION
     Dosage: UNK
     Route: 065

REACTIONS (7)
  - Abdominal pain upper [Recovering/Resolving]
  - Urine odour abnormal [Recovering/Resolving]
  - Hepatic pain [Recovering/Resolving]
  - Unevaluable event [Recovering/Resolving]
  - Renal pain [Recovering/Resolving]
  - Arthralgia [Recovering/Resolving]
  - Blood glucose abnormal [Unknown]
